FAERS Safety Report 5573152-8 (Version None)
Quarter: 2007Q4

REPORT INFORMATION
  Report Type: 
  Country: None (occurrence: None)
  Receive Date: 20071220
  Receipt Date: 20071210
  Transmission Date: 20080405
  Serious: Yes (Hospitalization)
  Sender: FDA-Public Use
  Company Number: 2007-05624

PATIENT
  Age: 42 Year
  Sex: Male

DRUGS (2)
  1. FIORINAL [Suspect]
     Dosage: 330 MG, DAILY, ORAL
     Route: 048
     Dates: start: 20070102, end: 20070104
  2. METHADONE HCL [Suspect]

REACTIONS (2)
  - ACUTE MYOCARDIAL INFARCTION [None]
  - DRUG INTERACTION [None]
